FAERS Safety Report 10975003 (Version 1)
Quarter: 2015Q2

REPORT INFORMATION
  Report Type: Spontaneous
  Country: US (occurrence: US)
  Receive Date: 20150401
  Receipt Date: 20150401
  Transmission Date: 20150821
  Serious: Yes (Other)
  Sender: FDA-Public Use
  Company Number: US-BAXTER-2015BAX016894

PATIENT
  Age: 57 Year
  Sex: Female

DRUGS (3)
  1. 5% DEXTROSE INJECTION USP [Suspect]
     Active Substance: DEXTROSE
     Indication: PRODUCT USED FOR UNKNOWN INDICATION
     Route: 065
     Dates: start: 20150318
  2. GAMMAGARD LIQUID [Suspect]
     Active Substance: HUMAN IMMUNOGLOBULIN G
     Indication: PRODUCT USED FOR UNKNOWN INDICATION
     Route: 065
  3. 0.9% SODIUM CHLORIDE INJECTION [Suspect]
     Active Substance: SODIUM CHLORIDE
     Indication: PRODUCT USED FOR UNKNOWN INDICATION
     Route: 065
     Dates: start: 20150318

REACTIONS (7)
  - Wrong drug administered [Unknown]
  - Feeling abnormal [Unknown]
  - Thrombosis [Unknown]
  - Arthritis [Unknown]
  - Malaise [Unknown]
  - Migraine [Unknown]
  - Pyrexia [Unknown]

NARRATIVE: CASE EVENT DATE: 20150318
